FAERS Safety Report 4669585-4 (Version None)
Quarter: 2005Q2

REPORT INFORMATION
  Report Type: 
  Country: None (occurrence: None)
  Receive Date: 20050523
  Receipt Date: 20030519
  Transmission Date: 20051028
  Serious: Yes (Other)
  Sender: FDA-Public Use
  Company Number: PHBS2003DE05203

PATIENT
  Age: 4 Year
  Sex: Female
  Weight: 13 kg

DRUGS (5)
  1. TACROLIMUS [Suspect]
     Indication: RENAL AND LIVER TRANSPLANT
  2. CYCLOSPORINE [Suspect]
     Indication: RENAL AND LIVER TRANSPLANT
     Route: 065
  3. BASILIXIMAB [Suspect]
     Indication: RENAL AND LIVER TRANSPLANT
     Dosage: 10 MG, ONCE/SINGLE
     Route: 065
  4. BASILIXIMAB [Suspect]
     Dosage: 10 MG, ONCE/SINGLE
     Route: 065
  5. PREDNISONE [Suspect]
     Indication: RENAL AND LIVER TRANSPLANT
     Dosage: 60 MG/M2/D TAPERED TO 4 MG/M2

REACTIONS (9)
  - ANURIA [None]
  - DIALYSIS [None]
  - DISEASE RECURRENCE [None]
  - HYPOTENSION [None]
  - LUNG INFECTION [None]
  - NEPHROPATHY TOXIC [None]
  - PROCEDURAL HYPOTENSION [None]
  - RENAL FAILURE [None]
  - RENAL TUBULAR DISORDER [None]
